FAERS Safety Report 16387451 (Version 2)
Quarter: 2019Q4

REPORT INFORMATION
  Report Type: Spontaneous
  Country: CN (occurrence: CN)
  Receive Date: 20190604
  Receipt Date: 20191014
  Transmission Date: 20200122
  Serious: Yes (Other)
  Sender: FDA-Public Use
  Company Number: CN-SUN PHARMACEUTICAL INDUSTRIES LTD-2019R1-209679

PATIENT
  Age: 53 Year
  Sex: Female

DRUGS (2)
  1. OXALIPLATIN. [Suspect]
     Active Substance: OXALIPLATIN
     Indication: ADENOCARCINOMA OF COLON
     Dosage: 130 MILLIGRAM/SQ. METER ON DAY 1, Q21D
     Route: 065
  2. CAPECITABINE. [Concomitant]
     Active Substance: CAPECITABINE
     Indication: ADENOCARCINOMA OF COLON
     Dosage: 1000 MILLIGRAM/SQ. METER ON DAYS 1-14, Q21D
     Route: 040

REACTIONS (4)
  - Thrombocytopenia [Recovered/Resolved]
  - Hypersensitivity [Unknown]
  - Acute kidney injury [Recovered/Resolved]
  - Haemolytic anaemia [Recovered/Resolved]
